FAERS Safety Report 6983739-3 (Version None)
Quarter: 2010Q3

REPORT INFORMATION
  Report Type: 
  Country: None (occurrence: None)
  Receive Date: 20100914
  Receipt Date: 20051125
  Transmission Date: 20110219
  Serious: Yes (Hospitalization)
  Sender: FDA-Public Use
  Company Number: US-WYE-H07147708

PATIENT
  Age: 14 Year
  Sex: Female

DRUGS (3)
  1. IBUPROFEN [Suspect]
     Dosage: 5 TABLETS X 1
     Route: 048
     Dates: start: 20001016, end: 20001016
  2. TYLENOL [Suspect]
     Dosage: 14 TABLETS X 1
     Route: 048
     Dates: start: 20001016, end: 20001016
  3. ALEVE (CAPLET) [Suspect]
     Dosage: 4 TABLETS X 1
     Route: 048
     Dates: start: 20001016, end: 20001016

REACTIONS (4)
  - ABDOMINAL PAIN [None]
  - GASTRITIS [None]
  - OVERDOSE [None]
  - VOMITING [None]
